FAERS Safety Report 25106195 (Version 1)
Quarter: 2025Q1

REPORT INFORMATION
  Report Type: Spontaneous
  Country: IT (occurrence: IT)
  Receive Date: 20250321
  Receipt Date: 20250321
  Transmission Date: 20250409
  Serious: Yes (Life-Threatening, Other)
  Sender: ALEXION PHARMACEUTICALS
  Company Number: IT-SA-2025SA061094

PATIENT
  Age: 4 Month

DRUGS (1)
  1. BEYFORTUS [Suspect]
     Active Substance: NIRSEVIMAB-ALIP
     Indication: Prophylaxis
     Route: 065

REACTIONS (3)
  - Respiratory syncytial virus infection [Unknown]
  - Loss of consciousness [Unknown]
  - Apnoea [Unknown]
